FAERS Safety Report 8131273-X (Version None)
Quarter: 2012Q1

REPORT INFORMATION
  Report Type: 
  Country: None (occurrence: None)
  Receive Date: 20120213
  Receipt Date: 20120203
  Transmission Date: 20120608
  Serious: Yes (Hospitalization)
  Sender: FDA-Public Use
  Company Number: US-BAYER-2011-042226

PATIENT
  Age: 24 Year
  Sex: Female
  Weight: 90.249 kg

DRUGS (7)
  1. AMILORIDE HYDROCHLORIDE [Concomitant]
     Dosage: UNK
     Dates: start: 20000801, end: 20041001
  2. MOTRIN [Concomitant]
     Dosage: 800 MG, UNK
     Route: 048
     Dates: start: 20040702
  3. LISINOPRIL [Concomitant]
     Dosage: UNK
     Route: 048
     Dates: start: 20000801, end: 20041001
  4. ASCORBIC ACID [Concomitant]
     Dosage: UNK
     Route: 048
     Dates: start: 20000101
  5. PERCOCET [Concomitant]
     Dosage: UNK
     Route: 048
     Dates: start: 20020101
  6. YASMIN [Suspect]
     Indication: CONTRACEPTION
     Dosage: UNK
     Dates: start: 20040301, end: 20040701
  7. MORPHINE SULFATE [Concomitant]
     Dosage: UNK
     Route: 048
     Dates: start: 20020101

REACTIONS (9)
  - PULMONARY EMBOLISM [None]
  - POST-TRAUMATIC STRESS DISORDER [None]
  - MENTAL DISORDER [None]
  - EMOTIONAL DISTRESS [None]
  - FEAR [None]
  - MUSCULOSKELETAL CHEST PAIN [None]
  - ANXIETY [None]
  - PAIN [None]
  - GENERAL PHYSICAL HEALTH DETERIORATION [None]
